FAERS Safety Report 24616711 (Version 1)
Quarter: 2024Q4

REPORT INFORMATION
  Report Type: Spontaneous
  Country: PL (occurrence: PL)
  Receive Date: 20241114
  Receipt Date: 20241114
  Transmission Date: 20250115
  Serious: Yes (Other)
  Sender: SANDOZ
  Company Number: PL-VELOXIS PHARMACEUTICALS-2021VELPL-000691

PATIENT
  Sex: Female

DRUGS (2)
  1. CYCLOSPORINE [Suspect]
     Active Substance: CYCLOSPORINE
     Indication: Immunosuppression
     Dosage: UNK
     Route: 065
  2. TACROLIMUS [Suspect]
     Active Substance: TACROLIMUS
     Indication: Immunosuppression
     Dosage: UNK
     Route: 065

REACTIONS (4)
  - Cerebral venous sinus thrombosis [Unknown]
  - Jugular vein thrombosis [Unknown]
  - Toxicity to various agents [Unknown]
  - Maternal exposure during pregnancy [Unknown]
